FAERS Safety Report 8183183-X (Version None)
Quarter: 2012Q1

REPORT INFORMATION
  Report Type: 
  Country: None (occurrence: None)
  Receive Date: 20120201
  Receipt Date: 20110202
  Transmission Date: 20120608
  Serious: Yes (Other)
  Sender: FDA-Public Use
  Company Number: 265839USA

PATIENT
  Sex: Female

DRUGS (1)
  1. PROPOXYPHENE NAPSYLATE AND ACETAMINOPHEN [Suspect]
     Dates: end: 20110101

REACTIONS (6)
  - HEART RATE IRREGULAR [None]
  - PALPITATIONS [None]
  - HEART RATE [None]
  - CHEST PAIN [None]
  - NAUSEA [None]
  - HYPERHIDROSIS [None]
